FAERS Safety Report 9086888 (Version 1)
Quarter: 2013Q1

REPORT INFORMATION
  Report Type: Report from Study
  Country: US (occurrence: US)
  Receive Date: 20130131
  Receipt Date: 20130131
  Transmission Date: 20140127
  Serious: Yes (Hospitalization)
  Sender: FDA-Public Use
  Company Number: US-ABBOTT-12P-163-0996772-00

PATIENT
  Sex: Female
  Weight: 69.46 kg

DRUGS (2)
  1. HUMIRA [Suspect]
     Indication: RHEUMATOID ARTHRITIS
     Dates: start: 200705, end: 201209
  2. HUMIRA [Suspect]
     Dates: start: 201210

REACTIONS (1)
  - Diverticulitis [Recovered/Resolved]
